FAERS Safety Report 15810342 (Version 35)
Quarter: 2022Q3

REPORT INFORMATION
  Report Type: Other
  Country: CA (occurrence: None)
  Receive Date: 20190111
  Receipt Date: 20220817
  Transmission Date: 20221027
  Serious: Yes (Hospitalization, Other)
  Sender: FDA-Public Use
  Company Number: CA-ROCHE-1768995

PATIENT
  Age: 52 Year
  Sex: Female
  Weight: 60 kg

DRUGS (16)
  1. ACTEMRA [Suspect]
     Active Substance: TOCILIZUMAB
     Indication: Rheumatoid arthritis
     Route: 042
     Dates: start: 20160524, end: 20200127
  2. ACTEMRA [Suspect]
     Active Substance: TOCILIZUMAB
     Dosage: ONGOING: YES
     Route: 042
     Dates: start: 20200224
  3. ACTEMRA [Suspect]
     Active Substance: TOCILIZUMAB
     Route: 042
     Dates: start: 20200323
  4. IMURAN [Concomitant]
     Active Substance: AZATHIOPRINE
  5. METHOTREXATE [Concomitant]
     Active Substance: METHOTREXATE
  6. FOLIC ACID [Concomitant]
     Active Substance: FOLIC ACID
  7. HUMIRA [Concomitant]
     Active Substance: ADALIMUMAB
  8. PREMARIN [Concomitant]
     Active Substance: ESTROGENS, CONJUGATED
  9. PANTOPRAZOLE MAGNESIUM [Concomitant]
     Active Substance: PANTOPRAZOLE MAGNESIUM
  10. DOMPERIDONE [Concomitant]
     Active Substance: DOMPERIDONE
  11. AXERT [Concomitant]
     Active Substance: ALMOTRIPTAN MALATE
  12. PERCOCET [Concomitant]
     Active Substance: ACETAMINOPHEN\OXYCODONE HYDROCHLORIDE
  13. SENOKOT [Concomitant]
     Active Substance: SENNOSIDES
  14. SERC [Concomitant]
     Indication: Dizziness
     Dates: start: 20210226
  15. DIGOXIN [Concomitant]
     Active Substance: DIGOXIN
  16. COVID-19 VACCINE NOS [Concomitant]
     Active Substance: COVID-19 VACCINE NOS

REACTIONS (58)
  - Cardiac ventricular disorder [Unknown]
  - Suspected COVID-19 [Recovered/Resolved]
  - Arrhythmia [Unknown]
  - Limb mass [Unknown]
  - Urticaria [Unknown]
  - Heart rate increased [Recovered/Resolved]
  - Tooth abscess [Recovered/Resolved]
  - Vomiting [Not Recovered/Not Resolved]
  - Oropharyngeal pain [Unknown]
  - Chest pain [Recovering/Resolving]
  - Asthenia [Recovering/Resolving]
  - Nausea [Recovered/Resolved]
  - Migraine [Unknown]
  - Gingivitis [Unknown]
  - Oral infection [Unknown]
  - Ear infection [Unknown]
  - Arthralgia [Not Recovered/Not Resolved]
  - Neck pain [Not Recovered/Not Resolved]
  - Joint swelling [Not Recovered/Not Resolved]
  - Swelling [Not Recovered/Not Resolved]
  - C-reactive protein increased [Unknown]
  - Laryngitis [Recovering/Resolving]
  - Fatigue [Unknown]
  - Insomnia [Not Recovered/Not Resolved]
  - Musculoskeletal stiffness [Not Recovered/Not Resolved]
  - Animal bite [Not Recovered/Not Resolved]
  - Erythema [Not Recovered/Not Resolved]
  - Abdominal pain upper [Not Recovered/Not Resolved]
  - Pain [Not Recovered/Not Resolved]
  - Fatigue [Not Recovered/Not Resolved]
  - Ear pain [Not Recovered/Not Resolved]
  - Weight increased [Unknown]
  - Illness [Not Recovered/Not Resolved]
  - Feeling hot [Unknown]
  - Wisdom teeth removal [Not Recovered/Not Resolved]
  - Blood pressure increased [Unknown]
  - Rhinorrhoea [Unknown]
  - Nasal discomfort [Unknown]
  - Dizziness [Recovered/Resolved]
  - Weight decreased [Unknown]
  - Nasopharyngitis [Unknown]
  - Blood pressure systolic increased [Unknown]
  - Dyspepsia [Unknown]
  - Infusion related reaction [Recovered/Resolved]
  - Pyrexia [Unknown]
  - Dyspnoea [Recovered/Resolved]
  - Headache [Recovered/Resolved]
  - Heart rate decreased [Unknown]
  - Blood pressure fluctuation [Unknown]
  - Back pain [Unknown]
  - Hypersensitivity [Unknown]
  - Cough [Not Recovered/Not Resolved]
  - Ear discomfort [Not Recovered/Not Resolved]
  - Oxygen saturation decreased [Unknown]
  - Fungal infection [Unknown]
  - Fall [Unknown]
  - Arthropathy [Unknown]
  - Tooth infection [Unknown]

NARRATIVE: CASE EVENT DATE: 20161201
